FAERS Safety Report 24169386 (Version 1)
Quarter: 2024Q3

REPORT INFORMATION
  Report Type: Spontaneous
  Country: FR (occurrence: FR)
  Receive Date: 20240802
  Receipt Date: 20240802
  Transmission Date: 20241016
  Serious: Yes (Death, Hospitalization)
  Sender: ANI
  Company Number: FR-ANIPHARMA-2024-FR-000124

PATIENT
  Age: 82 Year
  Sex: Male

DRUGS (9)
  1. CANDESARTAN [Suspect]
     Active Substance: CANDESARTAN
     Indication: Hypertension
     Dosage: 8 MG DAILY
     Dates: start: 20240422, end: 20240601
  2. BISOPROLOL FUMARATE\HYDROCHLOROTHIAZIDE [Suspect]
     Active Substance: BISOPROLOL FUMARATE\HYDROCHLOROTHIAZIDE
     Dosage: 1.25 MG DAILY / 1.25 MG DAILY / 1.25 MG DAILY
     Dates: start: 20190615
  3. AMIODARONE [Concomitant]
     Active Substance: AMIODARONE
     Dosage: 100 MG DAILY
     Route: 048
  4. ALPRAZOLAM [Concomitant]
     Active Substance: ALPRAZOLAM
  5. KARDEGIC [Concomitant]
     Active Substance: ASPIRIN DL-LYSINE
  6. COTRIMOXAZOLE [Suspect]
     Active Substance: SULFAMETHOXAZOLE\TRIMETHOPRIM
     Dosage: 2 DF DAILY
     Dates: start: 20240529, end: 20240601
  7. FUROSEMIDE [Suspect]
     Active Substance: FUROSEMIDE
     Dosage: 40 MG DAILY
     Dates: start: 20240328, end: 20240601
  8. METFORMIN [Suspect]
     Active Substance: METFORMIN HYDROCHLORIDE
     Dosage: 1500 MG DAILY
     Dates: start: 20240221
  9. ACETAMINOPHEN [Concomitant]
     Active Substance: ACETAMINOPHEN

REACTIONS (16)
  - Lactic acidosis [Fatal]
  - Acute kidney injury [Not Recovered/Not Resolved]
  - Inflammation [Not Recovered/Not Resolved]
  - Cardiomegaly [Not Recovered/Not Resolved]
  - Septic shock [Fatal]
  - Left ventricular dysfunction [Not Recovered/Not Resolved]
  - Haematuria [Recovered/Resolved]
  - Haematoma [Recovered/Resolved]
  - End stage renal disease [Fatal]
  - Hypoglycaemia [Fatal]
  - Hyperkalaemia [Fatal]
  - Cardiorenal syndrome [Fatal]
  - Pseudomonas infection [Not Recovered/Not Resolved]
  - Serratia infection [Not Recovered/Not Resolved]
  - Decreased appetite [Not Recovered/Not Resolved]
  - Asthenia [Not Recovered/Not Resolved]

NARRATIVE: CASE EVENT DATE: 20240428
